FAERS Safety Report 5204309-3 (Version None)
Quarter: 2007Q1

REPORT INFORMATION
  Report Type: 
  Country: None (occurrence: None)
  Receive Date: 20070110
  Receipt Date: 20060208
  Transmission Date: 20070707
  Serious: Yes (Hospitalization)
  Sender: FDA-Public Use
  Company Number: US-BRISTOL-MYERS SQUIBB COMPANY-13275656

PATIENT
  Age: 12 Year
  Sex: Female
  Weight: 39 kg

DRUGS (3)
  1. ABILIFY [Suspect]
     Indication: AGITATED DEPRESSION
     Dosage: ABILIFY: STARTED ON 2.5MG QD ON 30-SEP-2005; TITRATED OVER 2-WEEK PERIOD TO 7.5MG (DATE UNSPECIFED)
  2. ABILIFY [Suspect]
     Indication: AFFECTIVE DISORDER
     Dosage: ABILIFY: STARTED ON 2.5MG QD ON 30-SEP-2005; TITRATED OVER 2-WEEK PERIOD TO 7.5MG (DATE UNSPECIFED)
  3. ABILIFY [Suspect]
     Indication: BORDERLINE PERSONALITY DISORDER
     Dosage: ABILIFY: STARTED ON 2.5MG QD ON 30-SEP-2005; TITRATED OVER 2-WEEK PERIOD TO 7.5MG (DATE UNSPECIFED)

REACTIONS (2)
  - HEADACHE [None]
  - PYREXIA [None]
